FAERS Safety Report 18668547 (Version 1)
Quarter: 2020Q4

REPORT INFORMATION
  Report Type: Spontaneous
  Country: US (occurrence: US)
  Receive Date: 20201225
  Receipt Date: 20201225
  Transmission Date: 20210114
  Serious: Yes (Disabling)
  Sender: FDA-Public Use
  Company Number: None

PATIENT
  Age: 26 Year
  Sex: Female
  Weight: 57.6 kg

DRUGS (1)
  1. METRONIDAZOLE 500 MG [Suspect]
     Active Substance: METRONIDAZOLE
     Indication: BACTERIAL VAGINOSIS

REACTIONS (4)
  - Dizziness postural [None]
  - Piloerection [None]
  - Neurotoxicity [None]
  - Heart rate decreased [None]

NARRATIVE: CASE EVENT DATE: 20201203
